FAERS Safety Report 11255716 (Version 2)
Quarter: 2015Q3

REPORT INFORMATION
  Report Type: Spontaneous
  Country: JP (occurrence: JP)
  Receive Date: 20150709
  Receipt Date: 20150811
  Transmission Date: 20151125
  Serious: Yes (Hospitalization, Other)
  Sender: FDA-Public Use
  Company Number: JP-TEVA-575458ISR

PATIENT
  Age: 49 Year
  Sex: Female

DRUGS (6)
  1. FOLINIC ACID [Concomitant]
     Active Substance: LEUCOVORIN
     Indication: COLORECTAL CANCER STAGE II
     Dosage: 200 MG/M2 DAILY; 26 COURSES
     Route: 042
     Dates: start: 201008
  2. FLUOROURACIL. [Concomitant]
     Active Substance: FLUOROURACIL
     Indication: COLORECTAL CANCER STAGE II
     Dosage: 2400 MG/M2/DAY (26 COURSES)
     Route: 042
     Dates: start: 201008
  3. OXALIPLATIN. [Suspect]
     Active Substance: OXALIPLATIN
     Indication: COLORECTAL CANCER STAGE II
     Dosage: 85 MG/M2 DAILY; 26 COURSES
     Route: 042
     Dates: start: 201008
  4. FLUOROURACIL. [Concomitant]
     Active Substance: FLUOROURACIL
     Indication: COLORECTAL CANCER STAGE II
     Dosage: 400 MG/M2
     Route: 040
     Dates: start: 201008
  5. BEVACIZUMAB [Concomitant]
     Active Substance: BEVACIZUMAB
     Indication: COLORECTAL CANCER STAGE II
     Dosage: 26 COURSES
     Route: 042
     Dates: start: 201008
  6. ALPRAZOLAM. [Concomitant]
     Active Substance: ALPRAZOLAM
     Route: 065

REACTIONS (3)
  - Disseminated intravascular coagulation [Unknown]
  - Venoocclusive liver disease [Recovering/Resolving]
  - Gastric varices haemorrhage [Recovering/Resolving]
